FAERS Safety Report 25870375 (Version 1)
Quarter: 2025Q4

REPORT INFORMATION
  Report Type: Other
  Country: US (occurrence: US)
  Receive Date: 20251001
  Receipt Date: 20251001
  Transmission Date: 20260118
  Serious: No
  Sender: TRAVERE THERAPEUTICS
  Company Number: US-TRAVERE-2025TVT01561

PATIENT
  Age: 41 Year
  Sex: Female

DRUGS (11)
  1. FILSPARI [Suspect]
     Active Substance: SPARSENTAN
     Indication: Chronic kidney disease
     Route: 048
     Dates: start: 20250507
  2. FILSPARI [Suspect]
     Active Substance: SPARSENTAN
     Indication: Proteinuria
     Dosage: 200 MG AND ARE CUTTING TABLETS IN HALF
     Route: 048
     Dates: start: 20250507
  3. PREGABALIN [Concomitant]
     Active Substance: PREGABALIN
  4. ALLOPURINOL [Concomitant]
     Active Substance: ALLOPURINOL
  5. LASIX [Concomitant]
     Active Substance: FUROSEMIDE
  6. VITAMIN D [Concomitant]
     Active Substance: VITAMIN D NOS
  7. SODIUM BICARBONATE [Concomitant]
     Active Substance: SODIUM BICARBONATE
  8. TARPEYO [Concomitant]
     Active Substance: BUDESONIDE
  9. SERTRALINE [Concomitant]
     Active Substance: SERTRALINE HYDROCHLORIDE
  10. ATORVASTATIN [Concomitant]
     Active Substance: ATORVASTATIN
  11. CLARITIN [Concomitant]
     Active Substance: LORATADINE

REACTIONS (4)
  - Hypotension [Unknown]
  - Dizziness [Unknown]
  - Off label use [Unknown]
  - Product use in unapproved indication [Unknown]
